FAERS Safety Report 15664243 (Version 1)
Quarter: 2018Q4

REPORT INFORMATION
  Report Type: Spontaneous
  Country: US (occurrence: US)
  Receive Date: 20181128
  Receipt Date: 20181128
  Transmission Date: 20190205
  Serious: No
  Sender: FDA-Public Use
  Company Number: US-BAYER-2018-218073

PATIENT
  Age: 87 Year
  Sex: Male
  Weight: 93 kg

DRUGS (2)
  1. MIRALAX [Suspect]
     Active Substance: POLYETHYLENE GLYCOL 3350
     Indication: GASTROINTESTINAL DISORDER
     Dosage: CAP FULL DOSE
     Route: 048
  2. COLESTROL [Concomitant]

REACTIONS (1)
  - Drug ineffective [Unknown]
